FAERS Safety Report 10004790 (Version 1)
Quarter: 2014Q1

REPORT INFORMATION
  Report Type: Spontaneous
  Country: PL (occurrence: PL)
  Receive Date: 20140312
  Receipt Date: 20140312
  Transmission Date: 20141002
  Serious: Yes (Life-Threatening, Hospitalization)
  Sender: FDA-Public Use
  Company Number: PL-GLAXOSMITHKLINE-B0975631A

PATIENT
  Age: 4 Year
  Sex: Male
  Weight: 21 kg

DRUGS (2)
  1. ZINNAT [Suspect]
     Indication: NASOPHARYNGITIS
     Dosage: 4ML PER DAY
     Route: 048
     Dates: start: 20140123
  2. PROSPAN [Suspect]
     Indication: NASOPHARYNGITIS
     Dosage: 4ML PER DAY
     Route: 048
     Dates: start: 20140123

REACTIONS (9)
  - Erythema [Recovered/Resolved]
  - Pruritus [Recovered/Resolved]
  - Lip swelling [Recovered/Resolved]
  - Eyelid oedema [Recovered/Resolved]
  - Erythema [Recovered/Resolved]
  - Dysphonia [Recovered/Resolved]
  - Pallor [Recovered/Resolved]
  - Dehydration [Recovered/Resolved]
  - Rash [Recovered/Resolved]
